FAERS Safety Report 8857070 (Version 1)
Quarter: 2012Q4

REPORT INFORMATION
  Report Type: Spontaneous
  Country: US (occurrence: None)
  Receive Date: 20121022
  Receipt Date: 20121022
  Transmission Date: 20130627
  Serious: Yes (Hospitalization)
  Sender: FDA-Public Use
  Company Number: None

PATIENT
  Age: 29 Year
  Sex: Female
  Weight: 50.8 kg

DRUGS (4)
  1. MIRENA [Suspect]
     Indication: EMBEDDED IUD
     Dates: start: 20060401, end: 20091210
  2. MIRENA [Suspect]
     Indication: EXTRAUTERINE INTRA-ABDOMINAL LOCALISATION OF IUD
     Dates: start: 20060401, end: 20091210
  3. MIRENA [Suspect]
     Indication: EMBEDDED IUD
     Dates: start: 20110816, end: 20110909
  4. MIRENA [Suspect]
     Indication: EXTRAUTERINE INTRA-ABDOMINAL LOCALISATION OF IUD
     Dates: start: 20110816, end: 20110909

REACTIONS (2)
  - Device dislocation [None]
  - Uterine perforation [None]
